FAERS Safety Report 4514218-0 (Version None)
Quarter: 2004Q4

REPORT INFORMATION
  Report Type: 
  Country: None (occurrence: None)
  Receive Date: 20040928
  Receipt Date: 20040715
  Transmission Date: 20050328
  Serious: No
  Sender: FDA-Public Use
  Company Number: 04P-163-0267054-00

PATIENT
  Age: 52 Year
  Sex: Female
  Weight: 81.6475 kg

DRUGS (4)
  1. HUMIRA [Suspect]
     Indication: SPONDYLOARTHROPATHY
     Dosage: 40 MG, 1 IN 2 WK, SUBCUTANEOUS
     Route: 058
     Dates: start: 20040615
  2. LEFLUNOMIDE [Concomitant]
  3. BUCINDOLOL HYDROCHLORIDE [Concomitant]
  4. TRIAMTERENE [Concomitant]

REACTIONS (7)
  - INJECTION SITE BURNING [None]
  - INJECTION SITE ERYTHEMA [None]
  - INJECTION SITE NODULE [None]
  - INJECTION SITE PRURITUS [None]
  - INJECTION SITE REACTION [None]
  - INJECTION SITE WARMTH [None]
  - URTICARIA [None]
